FAERS Safety Report 6057417-1 (Version None)
Quarter: 2009Q1

REPORT INFORMATION
  Report Type: 
  Country: None (occurrence: None)
  Receive Date: 20090129
  Receipt Date: 20090122
  Transmission Date: 20090719
  Serious: Yes (Death, Hospitalization)
  Sender: FDA-Public Use
  Company Number: IT-BAYER-200832672GPV

PATIENT
  Age: 70 Year
  Sex: Male

DRUGS (20)
  1. CAMPATH [Suspect]
     Indication: PERIPHERAL T-CELL LYMPHOMA UNSPECIFIED
     Route: 058
     Dates: start: 20081105, end: 20081105
  2. CAMPATH [Suspect]
     Route: 058
     Dates: start: 20081101, end: 20081101
  3. CAMPATH [Suspect]
     Route: 058
     Dates: start: 20081104, end: 20081104
  4. CYCLOPHOSPHAMIDE [Suspect]
     Indication: PERIPHERAL T-CELL LYMPHOMA UNSPECIFIED
     Route: 065
     Dates: start: 20081105, end: 20081113
  5. DOXORUBICIN [Suspect]
     Indication: PERIPHERAL T-CELL LYMPHOMA UNSPECIFIED
     Route: 065
     Dates: start: 20081105, end: 20081113
  6. VINCRISTINE [Suspect]
     Indication: PERIPHERAL T-CELL LYMPHOMA UNSPECIFIED
     Route: 065
     Dates: start: 20081105, end: 20081113
  7. PREDNISONE [Suspect]
     Indication: PERIPHERAL T-CELL LYMPHOMA UNSPECIFIED
     Route: 065
     Dates: start: 20081105, end: 20081113
  8. ZOVIRAX [Concomitant]
     Indication: ANTIVIRAL PROPHYLAXIS
     Route: 042
     Dates: start: 20081113
  9. SPORANOX [Concomitant]
     Indication: ANTIFUNGAL PROPHYLAXIS
     Dosage: TOTAL DAILY DOSE: 200 MG
     Route: 042
     Dates: start: 20081113
  10. IMIPENEM [Concomitant]
     Indication: ANTIBIOTIC PROPHYLAXIS
     Route: 042
     Dates: start: 20081113
  11. PERFALGAN [Concomitant]
     Indication: PYREXIA
     Route: 065
  12. STEROIDS [Concomitant]
     Indication: PYREXIA
     Route: 065
  13. TAZOCIN [Concomitant]
     Indication: ANTIBIOTIC PROPHYLAXIS
     Dosage: TOTAL DAILY DOSE: 4.5 G
     Route: 042
     Dates: start: 20081130, end: 20081208
  14. DOPAMINA [Concomitant]
     Indication: PRESYNCOPE
     Route: 042
     Dates: start: 20081206, end: 20081216
  15. DOPAMINA [Concomitant]
     Route: 042
     Dates: start: 20081101
  16. MORFINA [Concomitant]
     Indication: ABDOMINAL PAIN
     Route: 042
     Dates: start: 20081214
  17. VFEND [Concomitant]
     Indication: FUNGAL INFECTION
     Dosage: TOTAL DAILY DOSE: 200 MG
     Route: 042
     Dates: start: 20081203, end: 20081211
  18. CASPOFUNGIN [Concomitant]
     Indication: FUNGAL INFECTION
     Route: 042
     Dates: start: 20081211
  19. VANCOMYCINA [Concomitant]
     Indication: BACTERIAL INFECTION
     Route: 042
     Dates: start: 20081207, end: 20081209
  20. TARGOCID [Concomitant]
     Indication: BACTERIAL INFECTION
     Route: 042
     Dates: start: 20081209

REACTIONS (7)
  - BRONCHOPULMONARY ASPERGILLOSIS [None]
  - ENTEROCOCCAL BACTERAEMIA [None]
  - LIVER DISORDER [None]
  - MELAENA [None]
  - PANCYTOPENIA [None]
  - PYREXIA [None]
  - T-CELL LYMPHOMA [None]
